FAERS Safety Report 6087472-4 (Version None)
Quarter: 2009Q1

REPORT INFORMATION
  Report Type: 
  Country: None (occurrence: None)
  Receive Date: 20090218
  Receipt Date: 20090218
  Transmission Date: 20090719
  Serious: No
  Sender: FDA-Public Use
  Company Number: None

PATIENT
  Age: 34 Year
  Sex: Female
  Weight: 144.6975 kg

DRUGS (5)
  1. BUPROPION SR 150MG [Suspect]
     Indication: MAJOR DEPRESSION
     Dosage: 150MG ONCE DAILY PO
     Route: 048
     Dates: start: 20080508, end: 20090216
  2. TOPAMAX [Concomitant]
  3. LO/OVRAL [Concomitant]
  4. ELAVIL [Concomitant]
  5. RELEPAX [Concomitant]

REACTIONS (2)
  - DRUG INEFFECTIVE [None]
  - THERAPEUTIC RESPONSE UNEXPECTED WITH DRUG SUBSTITUTION [None]
